FAERS Safety Report 22034949 (Version 3)
Quarter: 2024Q1

REPORT INFORMATION
  Report Type: Spontaneous
  Country: US (occurrence: US)
  Receive Date: 20230224
  Receipt Date: 20240124
  Transmission Date: 20240409
  Serious: Yes (Other)
  Sender: FDA-Public Use
  Company Number: US-PFIZER INC-2019232728

PATIENT
  Age: 71 Year
  Sex: Male

DRUGS (1)
  1. XELJANZ XR [Suspect]
     Active Substance: TOFACITINIB CITRATE
     Indication: Osteoarthritis
     Dosage: 11 MG

REACTIONS (7)
  - Nephrolithiasis [Unknown]
  - Limb operation [Unknown]
  - Urine analysis abnormal [Unknown]
  - Reflexes abnormal [Unknown]
  - Blood cholesterol abnormal [Unknown]
  - Drug effective for unapproved indication [Unknown]
  - Off label use [Unknown]
